FAERS Safety Report 15216825 (Version 2)
Quarter: 2018Q3

REPORT INFORMATION
  Report Type: Report from Study
  Country: US (occurrence: US)
  Receive Date: 20180730
  Receipt Date: 20180807
  Transmission Date: 20181010
  Serious: Yes (Death, Hospitalization)
  Sender: FDA-Public Use
  Company Number: US-ACTELION-A-NJ2018-176036

PATIENT
  Age: 5 Year
  Sex: Male

DRUGS (3)
  1. TRACLEER [Suspect]
     Active Substance: BOSENTAN
     Indication: PULMONARY HYPERTENSION
     Dosage: 31.25 MG, BID
     Route: 048
     Dates: start: 20180227, end: 20180621
  2. MILRINONE [Concomitant]
     Active Substance: MILRINONE
     Dosage: 18?6 MCG/MIN
     Route: 042
     Dates: start: 201711
  3. SILDENAFIL. [Concomitant]
     Active Substance: SILDENAFIL
     Indication: PULMONARY ARTERIAL HYPERTENSION
     Dosage: 15 MG, TID
     Dates: start: 2017

REACTIONS (4)
  - General physical health deterioration [Unknown]
  - Heart transplant [Fatal]
  - Multiple organ dysfunction syndrome [Fatal]
  - Aspergillus infection [Fatal]

NARRATIVE: CASE EVENT DATE: 20180718
